FAERS Safety Report 24020371 (Version 2)
Quarter: 2025Q1

REPORT INFORMATION
  Report Type: Spontaneous
  Country: PL (occurrence: PL)
  Receive Date: 20240627
  Receipt Date: 20250206
  Transmission Date: 20250409
  Serious: No
  Sender: NOVO NORDISK
  Company Number: PL-NOVOPROD-1243351

PATIENT
  Age: 44 Year
  Sex: Male

DRUGS (1)
  1. OZEMPIC [Suspect]
     Active Substance: SEMAGLUTIDE
     Indication: Product used for unknown indication
     Route: 058

REACTIONS (2)
  - Abdominal pain lower [Recovering/Resolving]
  - Product dose omission issue [Unknown]
